FAERS Safety Report 10215763 (Version 1)
Quarter: 2014Q2

REPORT INFORMATION
  Report Type: Spontaneous
  Country: US (occurrence: US)
  Receive Date: 20140604
  Receipt Date: 20140604
  Transmission Date: 20141212
  Serious: Yes (Other)
  Sender: FDA-Public Use
  Company Number: US-ROCHE-1411264

PATIENT
  Age: 49 Year
  Sex: Female

DRUGS (2)
  1. XOLAIR [Suspect]
     Indication: ASTHMA
     Route: 065
     Dates: start: 2008
  2. ADVAIR [Concomitant]
     Indication: ASTHMA

REACTIONS (2)
  - Haematoma [Unknown]
  - Drug dose omission [Unknown]
